FAERS Safety Report 12767607 (Version 1)
Quarter: 2016Q3

REPORT INFORMATION
  Report Type: Spontaneous
  Country: PL (occurrence: PL)
  Receive Date: 20160921
  Receipt Date: 20160921
  Transmission Date: 20161109
  Serious: Yes (Other)
  Sender: FDA-Public Use
  Company Number: PL-PFIZER INC-2016435449

PATIENT
  Sex: Male
  Weight: 70 kg

DRUGS (2)
  1. LYRICA [Suspect]
     Active Substance: PREGABALIN
     Indication: PROSTATE CANCER
     Dosage: 75 MG, 2X/DAY
     Route: 048
     Dates: end: 20160902
  2. PHENTANYL [Concomitant]
     Active Substance: FENTANYL
     Dosage: 100 UG/H

REACTIONS (2)
  - Product use issue [Unknown]
  - Seizure [Recovered/Resolved]

NARRATIVE: CASE EVENT DATE: 20160902
